FAERS Safety Report 13628805 (Version 3)
Quarter: 2017Q3

REPORT INFORMATION
  Report Type: Report from Study
  Country: US (occurrence: US)
  Receive Date: 20170607
  Receipt Date: 20170822
  Transmission Date: 20171127
  Serious: Yes (Death)
  Sender: FDA-Public Use
  Company Number: US-PFIZER INC-2017245888

PATIENT
  Age: 58 Year
  Sex: Male

DRUGS (8)
  1. SERTRALINE HCL [Suspect]
     Active Substance: SERTRALINE HYDROCHLORIDE
     Dosage: ^12.5 MG^ (HALF TABLET), DAILY
     Dates: start: 20170407
  2. LOSARTAN POTASSIUM. [Concomitant]
     Active Substance: LOSARTAN POTASSIUM
  3. XANAX [Suspect]
     Active Substance: ALPRAZOLAM
     Dosage: UNK
  4. BLINDED THERAPY [Suspect]
     Active Substance: INVESTIGATIONAL PRODUCT
     Dosage: UNK
     Dates: start: 20160414
  5. RILUZOLE. [Suspect]
     Active Substance: RILUZOLE
     Dosage: UNK
  6. VITAMIN B12 [Concomitant]
     Active Substance: CYANOCOBALAMIN
  7. SERTRALINE HCL [Suspect]
     Active Substance: SERTRALINE HYDROCHLORIDE
     Indication: ANXIETY
     Dosage: 25 MG (1 TABLET), DAILY
     Dates: start: 201702
  8. SYNTHROID [Concomitant]
     Active Substance: LEVOTHYROXINE SODIUM

REACTIONS (1)
  - Overdose [Fatal]

NARRATIVE: CASE EVENT DATE: 20170420
